FAERS Safety Report 6153833-8 (Version None)
Quarter: 2009Q2

REPORT INFORMATION
  Report Type: 
  Country: None (occurrence: None)
  Receive Date: 20090414
  Receipt Date: 20070410
  Transmission Date: 20091009
  Serious: Yes (Hospitalization, Other)
  Sender: FDA-Public Use
  Company Number: US-ASTRAZENECA-2006UW08073

PATIENT
  Age: 18120 Day
  Sex: Female
  Weight: 62.6 kg

DRUGS (26)
  1. SEROQUEL [Suspect]
     Indication: INSOMNIA
     Dosage: 25-50 MG
     Route: 048
     Dates: start: 20040201
  2. TRAZODONE [Concomitant]
  3. CLONAZEPAM [Concomitant]
  4. NORVASC [Concomitant]
  5. CELEXA [Concomitant]
  6. ISORDIL [Concomitant]
  7. HYZAAR [Concomitant]
  8. ZELNORM [Concomitant]
  9. GLUCOPHAGE [Concomitant]
  10. GLUCOTROL [Concomitant]
  11. ZETIA [Concomitant]
  12. PROTONIX [Concomitant]
  13. ZOLOFT [Concomitant]
  14. AMBIEN [Concomitant]
  15. NITROGLYCERIN [Concomitant]
  16. ASPIRIN [Concomitant]
  17. PREVACID [Concomitant]
  18. KLONOPIN [Concomitant]
  19. NEXIUM [Concomitant]
  20. COMBIVENT [Concomitant]
  21. REGLAN [Concomitant]
  22. LIPITOR [Concomitant]
  23. IMDUR [Concomitant]
  24. INSULATARD NPH HUMAN [Concomitant]
  25. LISINOPRIL [Concomitant]
  26. PREMARIN [Concomitant]

REACTIONS (10)
  - ANGINA UNSTABLE [None]
  - CORONARY ARTERY DISEASE [None]
  - DIABETES MELLITUS [None]
  - DIABETIC NEUROPATHY [None]
  - HYPERTENSION [None]
  - MAJOR DEPRESSION [None]
  - MYOCARDIAL INFARCTION [None]
  - NAUSEA [None]
  - URGE INCONTINENCE [None]
  - VOMITING [None]
